FAERS Safety Report 25022275 (Version 1)
Quarter: 2025Q1

REPORT INFORMATION
  Report Type: Report from Study
  Country: CZ (occurrence: CZ)
  Receive Date: 20250228
  Receipt Date: 20250228
  Transmission Date: 20250409
  Serious: Yes (Other)
  Sender: TAKEDA
  Company Number: CZ-PMCS-2024002124

PATIENT
  Age: 74 Year
  Sex: Male

DRUGS (12)
  1. BORTEZOMIB [Suspect]
     Active Substance: BORTEZOMIB
     Indication: Waldenstrom^s macroglobulinaemia
  2. RITUXIMAB [Suspect]
     Active Substance: RITUXIMAB
     Indication: Pancytopenia
     Dosage: 375 MILLIGRAM/SQ. METER, 1/WEEK
  3. RITUXIMAB [Suspect]
     Active Substance: RITUXIMAB
     Indication: Waldenstrom^s macroglobulinaemia
  4. RITUXIMAB [Suspect]
     Active Substance: RITUXIMAB
  5. DEXAMETHASONE [Suspect]
     Active Substance: DEXAMETHASONE
     Indication: Pancytopenia
  6. DEXAMETHASONE [Suspect]
     Active Substance: DEXAMETHASONE
     Indication: Waldenstrom^s macroglobulinaemia
  7. DEXAMETHASONE [Suspect]
     Active Substance: DEXAMETHASONE
  8. WARFARIN [Suspect]
     Active Substance: WARFARIN
     Indication: Atrial fibrillation
  9. BENDAMUSTINE [Concomitant]
     Active Substance: BENDAMUSTINE
     Indication: Pancytopenia
  10. BENDAMUSTINE [Concomitant]
     Active Substance: BENDAMUSTINE
     Indication: Waldenstrom^s macroglobulinaemia
  11. REMDESIVIR [Concomitant]
     Active Substance: REMDESIVIR
     Indication: COVID-19
  12. IXAZOMIB [Concomitant]
     Active Substance: IXAZOMIB
     Indication: Waldenstrom^s macroglobulinaemia

REACTIONS (5)
  - COVID-19 [Recovered/Resolved]
  - Neuropathy peripheral [Unknown]
  - Coagulopathy [Unknown]
  - Neuralgia [Unknown]
  - Sleep disorder [Unknown]
